FAERS Safety Report 6709855-9 (Version None)
Quarter: 2010Q2

REPORT INFORMATION
  Report Type: 
  Country: None (occurrence: None)
  Receive Date: 20100504
  Receipt Date: 20100426
  Transmission Date: 20101027
  Serious: Yes (Life-Threatening)
  Sender: FDA-Public Use
  Company Number: B0649451A

PATIENT
  Age: 70 Year
  Sex: Male

DRUGS (6)
  1. LAMICTAL [Suspect]
     Route: 048
     Dates: start: 20100201
  2. LAMICTAL [Suspect]
     Route: 048
  3. WARFARIN SODIUM [Concomitant]
     Indication: DEEP VEIN THROMBOSIS
     Route: 048
  4. SIMVASTATIN [Concomitant]
     Indication: BLOOD CHOLESTEROL INCREASED
     Route: 048
  5. OMEPRAZOLE [Concomitant]
     Route: 048
  6. NASONEX [Concomitant]
     Indication: NASAL CONGESTION

REACTIONS (3)
  - NIGHT SWEATS [None]
  - SLEEP DISORDER [None]
  - SWOLLEN TONGUE [None]
